FAERS Safety Report 8180775-9 (Version None)
Quarter: 2012Q1

REPORT INFORMATION
  Report Type: 
  Country: None (occurrence: None)
  Receive Date: 20120302
  Receipt Date: 20120228
  Transmission Date: 20120608
  Serious: Yes (Other)
  Sender: FDA-Public Use
  Company Number: HR-PFIZER INC-2012051763

PATIENT
  Sex: Female

DRUGS (3)
  1. DICLOFENAC SODIUM [Concomitant]
     Dosage: 75 MG, 1X/DAY
     Route: 048
  2. NORMABEL (DIAZEPAM) [Concomitant]
     Indication: HEADACHE
     Dosage: 5 MG, 2X/DAY
     Route: 048
  3. LYRICA [Suspect]
     Indication: HEADACHE
     Dosage: 75 MG, 2X/DAY
     Route: 048
     Dates: start: 20110917, end: 20111230

REACTIONS (4)
  - DISORIENTATION [None]
  - LOSS OF CONSCIOUSNESS [None]
  - DIPLOPIA [None]
  - PANIC ATTACK [None]
